FAERS Safety Report 20981818 (Version 2)
Quarter: 2022Q3

REPORT INFORMATION
  Report Type: Spontaneous
  Country: US (occurrence: US)
  Receive Date: 20220620
  Receipt Date: 20220728
  Transmission Date: 20221027
  Serious: Yes (Other)
  Sender: FDA-Public Use
  Company Number: US-BRISTOL-MYERS SQUIBB COMPANY-2022-060348

PATIENT
  Age: 57 Year
  Sex: Female

DRUGS (2)
  1. REVLIMID [Suspect]
     Active Substance: LENALIDOMIDE
     Indication: Plasma cell myeloma
     Route: 048
     Dates: start: 202204
  2. REVLIMID [Suspect]
     Active Substance: LENALIDOMIDE
     Dosage: DAILY 21 ON 7 OFF
     Route: 048
     Dates: start: 202011

REACTIONS (12)
  - Insomnia [Unknown]
  - Fatigue [Unknown]
  - Blepharospasm [Unknown]
  - Neuropathy peripheral [Unknown]
  - Constipation [Unknown]
  - Hyperhidrosis [Unknown]
  - Oedema peripheral [Unknown]
  - Asthenia [Unknown]
  - Chills [Unknown]
  - Vision blurred [Unknown]
  - Back pain [Unknown]
  - Arthralgia [Unknown]
